FAERS Safety Report 15896040 (Version 3)
Quarter: 2019Q1

REPORT INFORMATION
  Report Type: Spontaneous
  Country: JP (occurrence: JP)
  Receive Date: 20190131
  Receipt Date: 20190218
  Transmission Date: 20190417
  Serious: Yes (Other)
  Sender: FDA-Public Use
  Company Number: JP-ASTRAZENECA-2019SE09007

PATIENT
  Age: 18906 Day
  Sex: Female
  Weight: 56 kg

DRUGS (4)
  1. FASENRA [Suspect]
     Active Substance: BENRALIZUMAB
     Indication: ASPIRIN-EXACERBATED RESPIRATORY DISEASE
     Route: 058
     Dates: start: 20190111, end: 20190111
  2. FLUTIFORM [Concomitant]
     Active Substance: FLUTICASONE PROPIONATE\FORMOTEROL FUMARATE
     Indication: ASPIRIN-EXACERBATED RESPIRATORY DISEASE
     Dosage: DOSE UNKNOWN TWO TIMES DAILY
     Route: 055
     Dates: start: 20180525
  3. KIPRES [Concomitant]
     Active Substance: MONTELUKAST SODIUM
     Indication: ASPIRIN-EXACERBATED RESPIRATORY DISEASE
     Route: 048
     Dates: start: 20121101
  4. ALVESCO [Concomitant]
     Active Substance: CICLESONIDE
     Indication: ASPIRIN-EXACERBATED RESPIRATORY DISEASE
     Route: 055
     Dates: start: 20130221

REACTIONS (5)
  - Pruritus [Recovered/Resolved]
  - Oral discomfort [Recovered/Resolved]
  - Anaphylactoid reaction [Recovered/Resolved]
  - Palpitations [Recovered/Resolved]
  - Flushing [Recovered/Resolved]

NARRATIVE: CASE EVENT DATE: 20190111
